FAERS Safety Report 9687505 (Version 1)
Quarter: 2013Q4

REPORT INFORMATION
  Report Type: Spontaneous
  Country: GB (occurrence: GB)
  Receive Date: 20131114
  Receipt Date: 20131114
  Transmission Date: 20140711
  Serious: Yes (Other)
  Sender: FDA-Public Use
  Company Number: GB-AMGEN-USASP2013079311

PATIENT
  Age: 54 Year
  Sex: Male

DRUGS (5)
  1. NPLATE [Suspect]
     Indication: IMMUNE THROMBOCYTOPENIC PURPURA
     Dosage: 500 UNK, UNK
     Route: 065
  2. PREDNISOLONE [Concomitant]
     Dosage: 1 MG/KG, UNK
  3. IMMUNOGLOBULIN I.V [Concomitant]
     Dosage: 0.4 MG/KG, UNK
     Route: 042
  4. METHYLPREDNISOLONE [Concomitant]
     Dosage: 1 G, UNK
     Route: 042
  5. RITUXIMAB [Concomitant]
     Dosage: 100 MUG, QWK

REACTIONS (4)
  - Haematuria [Unknown]
  - Platelet count abnormal [Unknown]
  - Lymphoma [Unknown]
  - Chronic lymphocytic leukaemia [Unknown]
